FAERS Safety Report 5684783-9 (Version None)
Quarter: 2008Q1

REPORT INFORMATION
  Report Type: 
  Country: None (occurrence: None)
  Receive Date: 20080328
  Receipt Date: 20070918
  Transmission Date: 20080703
  Serious: Yes (Other)
  Sender: FDA-Public Use
  Company Number: US-BRISTOL-MYERS SQUIBB COMPANY-13912407

PATIENT
  Age: 78 Year
  Sex: Male
  Weight: 54 kg

DRUGS (2)
  1. CETUXIMAB [Suspect]
     Indication: NEOPLASM MALIGNANT
     Route: 041
     Dates: start: 20061222, end: 20070112
  2. RADIATION THERAPY [Suspect]

REACTIONS (2)
  - MUCOSAL INFLAMMATION [None]
  - SKIN REACTION [None]
